FAERS Safety Report 6386813-8 (Version None)
Quarter: 2009Q4

REPORT INFORMATION
  Report Type: 
  Country: None (occurrence: None)
  Receive Date: 20091002
  Receipt Date: 20090929
  Transmission Date: 20100525
  Serious: Yes (Death)
  Sender: FDA-Public Use
  Company Number: B0595465A

PATIENT
  Age: 54 Year
  Sex: Male

DRUGS (3)
  1. ZANTAC [Suspect]
     Indication: DYSPEPSIA
     Route: 042
     Dates: start: 20090917, end: 20090917
  2. NSAID [Concomitant]
     Indication: DRUG USE FOR UNKNOWN INDICATION
     Route: 065
  3. ZANTAC [Concomitant]
     Indication: ABDOMINAL PAIN UPPER
     Route: 065

REACTIONS (5)
  - ANGINA PECTORIS [None]
  - CARDIAC ARREST [None]
  - CHEST PAIN [None]
  - DYSPEPSIA [None]
  - MIOSIS [None]
